FAERS Safety Report 17911797 (Version 4)
Quarter: 2020Q4

REPORT INFORMATION
  Report Type: Spontaneous
  Country: US (occurrence: US)
  Receive Date: 20200618
  Receipt Date: 20201209
  Transmission Date: 20210113
  Serious: No
  Sender: FDA-Public Use
  Company Number: US-PFIZER INC-2020237178

PATIENT
  Age: 82 Year
  Sex: Female
  Weight: 70.31 kg

DRUGS (1)
  1. IBRANCE [Suspect]
     Active Substance: PALBOCICLIB
     Indication: BREAST CANCER FEMALE
     Dosage: 100 MG, 1X/DAY (AFTER FOOD)
     Route: 048
     Dates: start: 201910

REACTIONS (4)
  - Taste disorder [Unknown]
  - Dysphagia [Unknown]
  - Fatigue [Unknown]
  - Dry mouth [Unknown]
